FAERS Safety Report 16050163 (Version 1)
Quarter: 2019Q1

REPORT INFORMATION
  Report Type: Spontaneous
  Country: PL (occurrence: PL)
  Receive Date: 20190308
  Receipt Date: 20190308
  Transmission Date: 20190418
  Serious: Yes (Death)
  Sender: FDA-Public Use
  Company Number: PL-ABBVIE-19K-129-2696273-00

PATIENT
  Age: 59 Year
  Sex: Female

DRUGS (6)
  1. VENCLYXTO [Suspect]
     Active Substance: VENETOCLAX
     Route: 048
     Dates: end: 201902
  2. VENCLYXTO [Suspect]
     Active Substance: VENETOCLAX
     Route: 048
  3. VENCLYXTO [Suspect]
     Active Substance: VENETOCLAX
     Route: 048
  4. VENCLYXTO [Suspect]
     Active Substance: VENETOCLAX
     Route: 048
  5. VENCLYXTO [Suspect]
     Active Substance: VENETOCLAX
     Route: 048
  6. VENCLYXTO [Suspect]
     Active Substance: VENETOCLAX
     Indication: CHRONIC LYMPHOCYTIC LEUKAEMIA
     Route: 048
     Dates: start: 20181114

REACTIONS (2)
  - Influenza [Fatal]
  - Chronic lymphocytic leukaemia [Fatal]
